FAERS Safety Report 20745222 (Version 3)
Quarter: 2022Q2

REPORT INFORMATION
  Report Type: Spontaneous
  Country: DE (occurrence: DE)
  Receive Date: 20220425
  Receipt Date: 20220503
  Transmission Date: 20220721
  Serious: Yes (Hospitalization, Disabling)
  Sender: FDA-Public Use
  Company Number: DE-NOVARTISPH-NVSC2022DE091130

PATIENT
  Age: 43 Year
  Sex: Female

DRUGS (23)
  1. CLINDAMYCIN [Suspect]
     Active Substance: CLINDAMYCIN
     Indication: Retinal artery occlusion
     Dosage: 300 MG, 0.25 D
     Route: 048
  2. METHYLPREDNISOLONE [Suspect]
     Active Substance: METHYLPREDNISOLONE
     Indication: Retinal artery occlusion
     Dosage: 100 MG, QD
     Route: 042
  3. PREDNISONE [Suspect]
     Active Substance: PREDNISONE
     Indication: Retinal artery occlusion
     Dosage: 5 MG, QD (FOR TWO WEEKS)
     Route: 048
  4. PREDNISONE [Suspect]
     Active Substance: PREDNISONE
     Dosage: 90 MG
     Route: 048
  5. PREDNISONE [Suspect]
     Active Substance: PREDNISONE
     Dosage: 60 MG
     Route: 048
  6. PREDNISONE [Suspect]
     Active Substance: PREDNISONE
     Dosage: 50 MG, QD (REDUCED)
     Route: 048
  7. PREDNISONE [Suspect]
     Active Substance: PREDNISONE
     Dosage: 10 MG (FURTHER REDUCTION OF 10 MG EVERY THREE DAYS, REMAINING ON 10 MG)
     Route: 048
  8. DEXPANTHENOL [Suspect]
     Active Substance: DEXPANTHENOL
     Indication: Retinal artery occlusion
     Dosage: 0.25 D
     Route: 047
  9. DEXPANTHENOL [Suspect]
     Active Substance: DEXPANTHENOL
     Dosage: 2 HOURS, DOSE INCREASED
     Route: 047
  10. DEXPANTHENOL [Suspect]
     Active Substance: DEXPANTHENOL
     Dosage: DOSE REDUCED (6 TIMES DAILY)
     Route: 047
  11. PREDNISOLONE [Suspect]
     Active Substance: PREDNISOLONE
     Indication: Retinal artery occlusion
     Dosage: 10 MG/ML, TID
     Route: 047
  12. PREDNISOLONE [Suspect]
     Active Substance: PREDNISOLONE
     Dosage: 10 MG/ML, QD
     Route: 047
  13. PREDNISOLONE [Suspect]
     Active Substance: PREDNISOLONE
     Dosage: 10 MG/ML, BID (DOSE REDUCED)
     Route: 047
  14. OFLOXACIN [Suspect]
     Active Substance: OFLOXACIN
     Indication: Retinal artery occlusion
     Dosage: 3 MILLIGRAM PER GRAM, 0.25 D
     Route: 047
  15. OFLOXACIN [Suspect]
     Active Substance: OFLOXACIN
     Dosage: 3 MILLIGRAM PER GRAM DOSE REDUCED, TID
     Route: 047
  16. PANTOPRAZOLE [Suspect]
     Active Substance: PANTOPRAZOLE
     Indication: Retinal artery occlusion
     Dosage: 40 MG, QD
     Route: 048
  17. ATROPINE [Suspect]
     Active Substance: ATROPINE
     Indication: Retinal artery occlusion
     Dosage: QD (DOSE REDUCED)
     Route: 047
  18. ATROPINE [Suspect]
     Active Substance: ATROPINE
     Dosage: BID
     Route: 047
  19. ASPIRIN [Suspect]
     Active Substance: ASPIRIN
     Indication: Retinal artery occlusion
     Dosage: 100 MG, QD
     Route: 048
  20. TINZAPARIN SODIUM [Suspect]
     Active Substance: TINZAPARIN SODIUM
     Indication: Retinal artery occlusion
     Dosage: 4.500IE
     Route: 058
  21. HYALURONIC ACID [Suspect]
     Active Substance: HYALURONIC ACID
     Indication: Dermal filler injection
     Dosage: 0.7 ML, GLABELLAR INJECTION
     Route: 065
  22. DEXAMETHASONE [Concomitant]
     Active Substance: DEXAMETHASONE
     Indication: Retinal artery occlusion
     Dosage: 1 MG/ML, QD
     Route: 047
  23. SEA WATER [Concomitant]
     Active Substance: SEA WATER
     Indication: Product used for unknown indication
     Dosage: UNK
     Route: 065

REACTIONS (9)
  - Strabismus [Not Recovered/Not Resolved]
  - Skin lesion [Not Recovered/Not Resolved]
  - Anterior segment ischaemia [Not Recovered/Not Resolved]
  - Hypotonia [Not Recovered/Not Resolved]
  - Lagophthalmos [Not Recovered/Not Resolved]
  - Retinal degeneration [Not Recovered/Not Resolved]
  - Blindness [Not Recovered/Not Resolved]
  - Madarosis [Not Recovered/Not Resolved]
  - Drug ineffective [Unknown]
